FAERS Safety Report 24331431 (Version 1)
Quarter: 2024Q3

REPORT INFORMATION
  Report Type: Report from Study
  Country: IT (occurrence: IT)
  Receive Date: 20240918
  Receipt Date: 20240918
  Transmission Date: 20241016
  Serious: Yes (Other)
  Sender: TEVA
  Company Number: IT-TEVA-VS-3242621

PATIENT

DRUGS (2)
  1. GEMCITABINE [Suspect]
     Active Substance: GEMCITABINE
     Indication: Brain neoplasm
     Dosage: GIVEN EVERY 14-28 DAYS FOR 1-6 CYCLES.
     Route: 065
  2. OXALIPLATIN [Suspect]
     Active Substance: OXALIPLATIN
     Indication: Brain neoplasm
     Dosage: GIVEN EVERY 14-28?DAYS FOR 1-6?CYCLES
     Route: 065

REACTIONS (1)
  - Platelet toxicity [Unknown]
